FAERS Safety Report 15619631 (Version 1)
Quarter: 2018Q4

REPORT INFORMATION
  Report Type: Spontaneous
  Country: US (occurrence: US)
  Receive Date: 20181115
  Receipt Date: 20181115
  Transmission Date: 20190205
  Serious: Yes (Death)
  Sender: FDA-Public Use
  Company Number: US-ROCHE-2212823

PATIENT
  Sex: Male
  Weight: 90.8 kg

DRUGS (2)
  1. CELLCEPT [Suspect]
     Active Substance: MYCOPHENOLATE MOFETIL\MYCOPHENOLATE MOFETIL HYDROCHLORIDE
     Indication: HEART TRANSPLANT
     Dosage: THREE 250 MG PILLS 2X^S DAY-AM AND AFTERNOON
     Route: 048
     Dates: start: 20030228
  2. DONEPEZIL. [Concomitant]
     Active Substance: DONEPEZIL
     Indication: HEART TRANSPLANT
     Dosage: ONGOING: YES
     Route: 065
     Dates: start: 20030228

REACTIONS (5)
  - Dementia with Lewy bodies [Fatal]
  - Cerebral disorder [Fatal]
  - Psoriasis [Not Recovered/Not Resolved]
  - Muscle disorder [Fatal]
  - Tremor [Not Recovered/Not Resolved]
